FAERS Safety Report 25716157 (Version 1)
Quarter: 2025Q3

REPORT INFORMATION
  Report Type: Report from Study
  Country: MX (occurrence: MX)
  Receive Date: 20250822
  Receipt Date: 20250822
  Transmission Date: 20251020
  Serious: Yes (Hospitalization)
  Sender: BIOVITRUM
  Company Number: MX-AstraZeneca-CH-00932108A

PATIENT
  Age: 5 Month
  Sex: Female
  Weight: 5 kg

DRUGS (7)
  1. PALIVIZUMAB [Suspect]
     Active Substance: PALIVIZUMAB
     Indication: Antiviral prophylaxis
     Route: 030
  2. PALIVIZUMAB [Suspect]
     Active Substance: PALIVIZUMAB
     Route: 030
     Dates: start: 20250718, end: 20250718
  3. PALIVIZUMAB [Suspect]
     Active Substance: PALIVIZUMAB
     Route: 030
     Dates: start: 20250815, end: 20250815
  4. PALIVIZUMAB [Suspect]
     Active Substance: PALIVIZUMAB
     Route: 030
     Dates: start: 20250815, end: 20250815
  5. PROTEFLOR [Concomitant]
     Indication: Premature baby
     Route: 048
     Dates: start: 20250505
  6. HIERRO [Concomitant]
     Indication: Premature baby
     Route: 048
     Dates: start: 20250505
  7. D-VI-SOL [Concomitant]
     Indication: Premature baby
     Dates: start: 20250505

REACTIONS (6)
  - Product administration error [Recovered/Resolved]
  - Oxygen saturation decreased [Unknown]
  - Nasal congestion [Recovered/Resolved]
  - Sneezing [Recovered/Resolved]
  - Dry throat [Recovering/Resolving]
  - Nasopharyngitis [Recovering/Resolving]

NARRATIVE: CASE EVENT DATE: 20250101
